FAERS Safety Report 5071795-1 (Version None)
Quarter: 2006Q3

REPORT INFORMATION
  Report Type: 
  Country: None (occurrence: None)
  Receive Date: 20060804
  Receipt Date: 20060724
  Transmission Date: 20061208
  Serious: Yes (Hospitalization)
  Sender: FDA-Public Use
  Company Number: PHBS2006GB11087

PATIENT
  Age: 66 Year
  Sex: Male

DRUGS (1)
  1. DICLOFENAC [Suspect]

REACTIONS (14)
  - ANOREXIA [None]
  - ECTHYMA [None]
  - ERYTHEMA [None]
  - ESCHAR [None]
  - LETHARGY [None]
  - MALAISE [None]
  - NEUTROPENIA [None]
  - NEUTROPHIL COUNT DECREASED [None]
  - OEDEMA [None]
  - PSEUDOMONAS INFECTION [None]
  - SCAR [None]
  - SKIN LESION [None]
  - SKIN NECROSIS [None]
  - WHITE BLOOD CELL COUNT DECREASED [None]
